FAERS Safety Report 5163291-8 (Version None)
Quarter: 2006Q4

REPORT INFORMATION
  Report Type: 
  Country: None (occurrence: None)
  Receive Date: 20061121
  Receipt Date: 20061115
  Transmission Date: 20070319
  Serious: Yes (Hospitalization)
  Sender: FDA-Public Use
  Company Number: 2006141213

PATIENT
  Sex: Male

DRUGS (1)
  1. VISINE (OXYMETAZOLINE) [Suspect]
     Indication: ACCIDENTAL EXPOSURE
     Dosage: 1/4 BOTTLE ONCE, ORAL
     Route: 048
     Dates: start: 20060602, end: 20060602

REACTIONS (4)
  - BLOOD PRESSURE DECREASED [None]
  - DIZZINESS [None]
  - HEART RATE DECREASED [None]
  - POISONING [None]
